FAERS Safety Report 7125086-5 (Version None)
Quarter: 2010Q4

REPORT INFORMATION
  Report Type: 
  Country: None (occurrence: None)
  Receive Date: 20101129
  Receipt Date: 20101015
  Transmission Date: 20110411
  Serious: Yes (Other)
  Sender: FDA-Public Use
  Company Number: US-AMGEN-USASP2010001427

PATIENT

DRUGS (9)
  1. PROCRIT [Suspect]
     Dosage: 40000 UNIT, UNK
     Route: 058
     Dates: start: 20070101, end: 20100401
  2. PROCRIT [Suspect]
     Dosage: UNK
  3. PLAVIX [Concomitant]
     Dosage: 75 MG, UNK
     Route: 048
  4. LOPRESSOR [Concomitant]
     Dosage: 100 MG, UNK
     Route: 048
  5. NOVOLOG [Concomitant]
     Dosage: UNK
  6. MAGNESIUM OXIDE [Concomitant]
     Dosage: 400 MG, UNK
     Route: 048
  7. SIMVASTATIN [Concomitant]
     Dosage: 40 MG, QD
     Route: 048
  8. METHOTREXATE [Concomitant]
     Dosage: 2.5 MG, 3 TIMES/WK
     Route: 048
  9. FOLIC ACID [Concomitant]
     Dosage: 1 MG, UNK
     Route: 048

REACTIONS (5)
  - DRUG INEFFECTIVE [None]
  - HAEMOGLOBIN DECREASED [None]
  - HEADACHE [None]
  - MUSCULOSKELETAL STIFFNESS [None]
  - NAUSEA [None]
